FAERS Safety Report 16253553 (Version 3)
Quarter: 2019Q2

REPORT INFORMATION
  Report Type: Spontaneous
  Country: BR (occurrence: BR)
  Receive Date: 20190430
  Receipt Date: 20190522
  Transmission Date: 20190711
  Serious: Yes (Death)
  Sender: FDA-Public Use
  Company Number: BR-ROCHE-2309362

PATIENT
  Sex: Male

DRUGS (23)
  1. ETOPOSIDE. [Suspect]
     Active Substance: ETOPOSIDE
     Dosage: R-CEOP (4 CYCLES)
     Route: 065
     Dates: start: 20171215, end: 20180216
  2. MELPHALAN. [Suspect]
     Active Substance: MELPHALAN
     Indication: DIFFUSE LARGE B-CELL LYMPHOMA
     Route: 065
     Dates: start: 200903
  3. OXALIPLATIN. [Suspect]
     Active Substance: OXALIPLATIN
     Indication: DIFFUSE LARGE B-CELL LYMPHOMA
     Dosage: R-GEMOX (6 CYCLES)
     Route: 065
     Dates: start: 20110812, end: 20111224
  4. MABTHERA [Suspect]
     Active Substance: RITUXIMAB
     Indication: DIFFUSE LARGE B-CELL LYMPHOMA
     Route: 042
  5. DOXORUBICIN [Suspect]
     Active Substance: DOXORUBICIN
     Indication: DIFFUSE LARGE B-CELL LYMPHOMA
     Dosage: R-CHOP (6 CYCLES)
     Route: 065
     Dates: start: 200601, end: 200605
  6. VINCRISTINE [Suspect]
     Active Substance: VINCRISTINE
     Dosage: R-CEOP (4 CYCLES)
     Route: 065
     Dates: start: 20171215, end: 20180216
  7. ETOPOSIDE. [Suspect]
     Active Substance: ETOPOSIDE
     Dosage: R-GEMOX (6 CYCLES)
     Route: 065
     Dates: start: 20110812, end: 20111224
  8. PREDNISONE. [Suspect]
     Active Substance: PREDNISONE
     Indication: DIFFUSE LARGE B-CELL LYMPHOMA
     Dosage: R-CHOP (6 CYCLES)
     Route: 065
     Dates: start: 200601, end: 200605
  9. TOCILIZUMAB. [Suspect]
     Active Substance: TOCILIZUMAB
     Indication: DIFFUSE LARGE B-CELL LYMPHOMA
     Dosage: R-CHOP (6 CYCLES)
     Route: 065
     Dates: start: 200601, end: 200605
  10. TOCILIZUMAB. [Suspect]
     Active Substance: TOCILIZUMAB
     Dosage: R-GEMOX (6 CYCLES)
     Route: 065
     Dates: start: 20110812, end: 20111224
  11. ETOPOSIDE. [Suspect]
     Active Substance: ETOPOSIDE
     Indication: DIFFUSE LARGE B-CELL LYMPHOMA
     Dosage: R-CHOP (6 CYCLES)
     Route: 065
     Dates: start: 200601, end: 200605
  12. ETOPOSIDE. [Suspect]
     Active Substance: ETOPOSIDE
     Route: 065
     Dates: start: 200903
  13. PREDNISONE. [Suspect]
     Active Substance: PREDNISONE
     Dosage: R-CEOP (4 CYCLES)
     Route: 065
     Dates: start: 20171215, end: 20180216
  14. CARMUSTINE. [Suspect]
     Active Substance: CARMUSTINE
     Indication: DIFFUSE LARGE B-CELL LYMPHOMA
     Route: 065
     Dates: start: 20090301
  15. CYCLOPHOSPHAMIDE. [Suspect]
     Active Substance: CYCLOPHOSPHAMIDE
     Dosage: R-CEOP (4 CYCLES)
     Route: 065
     Dates: start: 20171215, end: 20180216
  16. VINCRISTINE [Suspect]
     Active Substance: VINCRISTINE
     Indication: DIFFUSE LARGE B-CELL LYMPHOMA
     Dosage: R-CHOP (6 CYCLES)
     Route: 065
     Dates: start: 200601, end: 200605
  17. CYTARABINE. [Suspect]
     Active Substance: CYTARABINE
     Indication: DIFFUSE LARGE B-CELL LYMPHOMA
     Route: 065
     Dates: start: 200903
  18. CARBOPLATIN. [Suspect]
     Active Substance: CARBOPLATIN
     Indication: DIFFUSE LARGE B-CELL LYMPHOMA
     Dosage: R-ICE (4 CYCLES)
     Route: 065
     Dates: start: 200810, end: 200901
  19. ETOPOSIDE. [Suspect]
     Active Substance: ETOPOSIDE
     Dosage: R-ICE (4 CYCLES)
     Route: 065
     Dates: start: 200810, end: 200901
  20. CYCLOPHOSPHAMIDE. [Suspect]
     Active Substance: CYCLOPHOSPHAMIDE
     Indication: DIFFUSE LARGE B-CELL LYMPHOMA
     Dosage: R-CHOP (6 CYCLES)
     Route: 065
     Dates: start: 200601, end: 200605
  21. GEMCITABINE [Suspect]
     Active Substance: GEMCITABINE\GEMCITABINE HYDROCHLORIDE
     Indication: DIFFUSE LARGE B-CELL LYMPHOMA
     Dosage: R-GEMOX (6 CYCLES)
     Route: 065
     Dates: start: 20110812, end: 20111224
  22. IFOSFAMIDE. [Suspect]
     Active Substance: IFOSFAMIDE
     Indication: DIFFUSE LARGE B-CELL LYMPHOMA
     Dosage: R-ICE (4 CYCLES)
     Route: 065
     Dates: start: 200810, end: 200901
  23. TOCILIZUMAB. [Suspect]
     Active Substance: TOCILIZUMAB
     Dosage: R-ICE (4 CYCLES)
     Route: 065
     Dates: start: 200810, end: 200901

REACTIONS (1)
  - Death [Fatal]
